FAERS Safety Report 5232733-1 (Version None)
Quarter: 2007Q1

REPORT INFORMATION
  Report Type: 
  Country: None (occurrence: None)
  Receive Date: 20070206
  Receipt Date: 20070206
  Transmission Date: 20070707
  Serious: No
  Sender: FDA-Public Use
  Company Number: None

PATIENT
  Age: 24 Year
  Sex: Female
  Weight: 79.8331 kg

DRUGS (1)
  1. LUTERA BIRTH CONTROL PILLS [Suspect]
     Indication: CONTRACEPTION
     Dosage: ONE PILL ONCE A DAY PO
     Route: 048
     Dates: start: 20061220, end: 20070201

REACTIONS (3)
  - CHEST PAIN [None]
  - DYSPNOEA [None]
  - HEADACHE [None]
